FAERS Safety Report 24061536 (Version 1)
Quarter: 2024Q3

REPORT INFORMATION
  Report Type: Spontaneous
  Country: US (occurrence: None)
  Receive Date: 20240706
  Receipt Date: 20240706
  Transmission Date: 20241016
  Serious: Yes (Other)
  Sender: Public
  Company Number: None

PATIENT
  Age: 58 Year
  Sex: Female
  Weight: 107.1 kg

DRUGS (5)
  1. MOUNJARO [Suspect]
     Active Substance: TIRZEPATIDE
     Indication: Diabetes mellitus
     Dosage: OTHER FREQUENCY : 1X WEEK;?
     Route: 058
     Dates: start: 20240229
  2. LEVOTHYROXINE [Concomitant]
     Active Substance: LEVOTHYROXINE\LEVOTHYROXINE SODIUM
  3. TECENTRIQ [Concomitant]
     Active Substance: ATEZOLIZUMAB
  4. MEMANTINE [Concomitant]
     Active Substance: MEMANTINE
  5. MOUNJARO [Suspect]
     Active Substance: TIRZEPATIDE

REACTIONS (6)
  - Muscle tightness [None]
  - Pain [None]
  - Chills [None]
  - Rash papular [None]
  - Rash [None]
  - Sensitive skin [None]

NARRATIVE: CASE EVENT DATE: 20240627
